FAERS Safety Report 26077971 (Version 1)
Quarter: 2025Q4

REPORT INFORMATION
  Report Type: Spontaneous
  Country: US (occurrence: US)
  Receive Date: 20251122
  Receipt Date: 20251122
  Transmission Date: 20260118
  Serious: No
  Sender: MDD OPERATIONS
  Company Number: US-MDD US Operations-MDD202509-003559

PATIENT
  Age: 74 Year
  Sex: Male

DRUGS (4)
  1. ONAPGO [Suspect]
     Active Substance: APOMORPHINE HYDROCHLORIDE
     Indication: Parkinson^s disease
     Dosage: 2MG PER HOUR FOR 16 HOURS A DAY
     Dates: start: 20250820
  2. ONAPGO [Suspect]
     Active Substance: APOMORPHINE HYDROCHLORIDE
     Dosage: 2.5MG PER HOUR FOR 16 HOURS A DAY
  3. CARBIDOPA AND LEVODOPA [Concomitant]
     Active Substance: CARBIDOPA\LEVODOPA
     Dosage: NOT PROVIDED
  4. CREXONT [Concomitant]
     Active Substance: CARBIDOPA\LEVODOPA
     Dosage: NOT PROVIDED

REACTIONS (5)
  - Chest discomfort [Not Recovered/Not Resolved]
  - Chest pain [Not Recovered/Not Resolved]
  - Haematoma [Unknown]
  - Fall [Unknown]
  - Dyskinesia [Recovering/Resolving]
